FAERS Safety Report 9409490 (Version 2)
Quarter: 2015Q2

REPORT INFORMATION
  Report Type: Report from Study
  Country: US (occurrence: US)
  Receive Date: 20130719
  Receipt Date: 20150525
  Transmission Date: 20150821
  Serious: Yes (Other)
  Sender: FDA-Public Use
  Company Number: US-ROCHE-1248215

PATIENT

DRUGS (3)
  1. BEVACIZUMAB [Suspect]
     Active Substance: BEVACIZUMAB
     Indication: GLIOBLASTOMA MULTIFORME
     Route: 042
  2. BKM120 [Suspect]
     Active Substance: BUPARLISIB HYDROCHLORIDE
     Indication: GLIOBLASTOMA MULTIFORME
     Dosage: PHASE I - 60 MG PER DAY?PHASE II - 60 MG DAILY
     Route: 048
  3. BKM120 [Suspect]
     Active Substance: BUPARLISIB HYDROCHLORIDE
     Dosage: PHASE I - 80 MG/DAY SELF-ADMINISTERED DAILY
     Route: 048

REACTIONS (16)
  - Dyspepsia [Unknown]
  - Alanine aminotransferase increased [Unknown]
  - Proteinuria [Unknown]
  - Mood altered [Unknown]
  - Confusional state [Unknown]
  - Stomatitis [Unknown]
  - Ataxia [Unknown]
  - Mental status changes [Unknown]
  - Delirium [Unknown]
  - Psychotic disorder [Unknown]
  - Nausea [Unknown]
  - Rash [Unknown]
  - Thrombocytopenia [Unknown]
  - Dehydration [Unknown]
  - Hyperglycaemia [Unknown]
  - Suicidal ideation [Unknown]
